FAERS Safety Report 24177816 (Version 3)
Quarter: 2024Q4

REPORT INFORMATION
  Report Type: Spontaneous
  Country: US (occurrence: US)
  Receive Date: 20240806
  Receipt Date: 20241009
  Transmission Date: 20250114
  Serious: No
  Sender: UNITED THERAPEUTICS
  Company Number: US-UNITED THERAPEUTICS-UNT-2024-007782

PATIENT
  Sex: Male

DRUGS (16)
  1. ORENITRAM [Suspect]
     Active Substance: TREPROSTINIL
     Indication: Pulmonary arterial hypertension
     Dosage: 0.625 MG, TID
     Dates: start: 2024, end: 202403
  2. ORENITRAM [Suspect]
     Active Substance: TREPROSTINIL
     Dosage: 0.5 MG, TID
     Dates: start: 20240305, end: 20240320
  3. ORENITRAM [Suspect]
     Active Substance: TREPROSTINIL
     Dosage: 0.625 MG (2 TABLETS OF 0.25 MG AND 1 TABLET OF 0.125 MG), TID
     Dates: start: 20240320, end: 20240327
  4. ORENITRAM [Suspect]
     Active Substance: TREPROSTINIL
     Dosage: 0.5 MG, TID
     Dates: start: 20240327, end: 2024
  5. ORENITRAM [Suspect]
     Active Substance: TREPROSTINIL
     Dosage: 0.75 MG, TID
     Dates: start: 2024
  6. ORENITRAM [Suspect]
     Active Substance: TREPROSTINIL
     Dosage: UNK
  7. ORENITRAM [Suspect]
     Active Substance: TREPROSTINIL
     Indication: Pulmonary arterial hypertension
     Dosage: UNK
  8. ORENITRAM [Suspect]
     Active Substance: TREPROSTINIL
     Indication: Pulmonary arterial hypertension
     Dosage: UNK
  9. CELLCEPT [Suspect]
     Active Substance: MYCOPHENOLATE MOFETIL
     Indication: Product used for unknown indication
     Dosage: UNK
  10. OFEV [Suspect]
     Active Substance: NINTEDANIB
     Indication: Interstitial lung disease
     Dosage: 100 MG, Q12H
     Dates: start: 202307, end: 202307
  11. OFEV [Suspect]
     Active Substance: NINTEDANIB
     Indication: Idiopathic interstitial pneumonia
     Dosage: 150 MG, Q12H
     Dates: start: 20230714
  12. OFEV [Suspect]
     Active Substance: NINTEDANIB
     Dosage: UNK
  13. OFEV [Suspect]
     Active Substance: NINTEDANIB
     Dosage: UNK
  14. OFEV [Suspect]
     Active Substance: NINTEDANIB
     Dosage: UNK
  15. OFEV [Suspect]
     Active Substance: NINTEDANIB
     Dosage: UNK
  16. RITUXAN [Concomitant]
     Active Substance: RITUXIMAB
     Indication: Product used for unknown indication
     Dosage: 50 ML/VL

REACTIONS (8)
  - Fatigue [Unknown]
  - Diarrhoea [Recovering/Resolving]
  - Gastroenteritis viral [Not Recovered/Not Resolved]
  - Gastrointestinal disorder [Unknown]
  - Chest pain [Unknown]
  - Dizziness [Unknown]
  - Peripheral swelling [Unknown]
  - Abdominal discomfort [Unknown]

NARRATIVE: CASE EVENT DATE: 20240101
